FAERS Safety Report 5267113-6 (Version None)
Quarter: 2007Q1

REPORT INFORMATION
  Report Type: 
  Country: None (occurrence: None)
  Receive Date: 20070316
  Receipt Date: 20070305
  Transmission Date: 20070707
  Serious: Yes (Hospitalization)
  Sender: FDA-Public Use
  Company Number: PHRM2007FR00974

PATIENT
  Age: 59 Year
  Sex: Female
  Weight: 60 kg

DRUGS (12)
  1. OMEPRAZOLE [Suspect]
     Dosage: 20 MG DAILY
  2. LEDERFOLIN [Suspect]
     Dosage: 25 MG, QW
  3. DI-ANTALVIC [Suspect]
  4. MORPHINE [Suspect]
     Dates: start: 20061218, end: 20061225
  5. ANESTHETICS, GENERAL [Concomitant]
     Indication: LUNG LOBECTOMY
  6. CORTANCYL [Suspect]
     Indication: BONE MARROW TRANSPLANT
  7. FUNGIZONE [Suspect]
     Dosage: 1 DF, TID
     Route: 048
  8. LEXOMIL [Suspect]
     Dosage: 12 MG, QD
     Route: 048
  9. VALACYCLOVIR HCL [Suspect]
     Dosage: 500 MG, QD
     Route: 048
  10. ORACILLINE [Suspect]
     Dosage: 1 MG, BID
  11. BACTRIM DS [Suspect]
     Dosage: 1 DF/DAY/3 DAYS/WEEK
  12. NEORAL [Suspect]
     Indication: BONE MARROW TRANSPLANT
     Dosage: 50 MG, BID
     Route: 048
     Dates: start: 20061005

REACTIONS (7)
  - ASPERGILLOMA [None]
  - ASPERGILLOSIS [None]
  - CONFUSIONAL STATE [None]
  - DEPRESSION [None]
  - DISORIENTATION [None]
  - LUNG LOBECTOMY [None]
  - MEMORY IMPAIRMENT [None]
